FAERS Safety Report 9570907 (Version 1)
Quarter: 2013Q4

REPORT INFORMATION
  Report Type: Report from Study
  Country: US (occurrence: US)
  Receive Date: 20131001
  Receipt Date: 20131001
  Transmission Date: 20140711
  Serious: Yes (Other)
  Sender: FDA-Public Use
  Company Number: US-ROCHE-1283369

PATIENT
  Sex: Male

DRUGS (11)
  1. LUCENTIS [Suspect]
     Indication: MACULAR DEGENERATION
     Dosage: LEFT EYE, START 2-3 YEARS, Q 2-3 MONTHS
     Route: 065
  2. LUCENTIS [Suspect]
     Dosage: RIGHT EYE, 4-5 MONTHS Q 2-3 MONTHS
     Route: 065
  3. METFORMIN HYDROCHLORIDE [Concomitant]
     Dosage: REPLACED BY UNKNOWN NEW MEDICATION
     Route: 065
     Dates: end: 201309
  4. ALPHAGAN [Concomitant]
     Dosage: 1 IN THE AM, 1 IN THE PM; START 4-5 YRS
     Route: 047
  5. RESTASIS [Concomitant]
     Dosage: 1 IN THE AM, 1 IN THE PM; START 4-5 YRS
     Route: 047
  6. HYDROCHLOROTHIAZIDE [Concomitant]
     Indication: BLOOD PRESSURE
     Route: 065
  7. AVODART [Concomitant]
  8. LOSARTAN [Concomitant]
     Indication: BLOOD PRESSURE
  9. BYSTOLIC [Concomitant]
     Indication: HYPERTENSION
  10. ATORVASTATIN [Concomitant]
     Indication: BLOOD CHOLESTEROL
  11. OMEPRAZOLE [Concomitant]
     Indication: GASTROOESOPHAGEAL REFLUX DISEASE

REACTIONS (1)
  - Age-related macular degeneration [Not Recovered/Not Resolved]
